FAERS Safety Report 5188084-7 (Version None)
Quarter: 2006Q4

REPORT INFORMATION
  Report Type: 
  Country: None (occurrence: None)
  Receive Date: 20061221
  Receipt Date: 20061206
  Transmission Date: 20070319
  Serious: Yes (Life-Threatening, Other)
  Sender: FDA-Public Use
  Company Number: 2006AP05923

PATIENT
  Age: 76 Year
  Sex: Male

DRUGS (5)
  1. DIPRIVAN [Suspect]
     Indication: INDUCTION OF ANAESTHESIA
     Route: 042
     Dates: start: 20061205, end: 20061205
  2. SULPERAZON [Suspect]
     Route: 041
     Dates: start: 20061205, end: 20061205
  3. MARCAINE [Concomitant]
     Indication: EPIDURAL ANAESTHESIA
     Route: 008
     Dates: start: 20061205, end: 20061205
  4. MUSCULAX [Concomitant]
     Indication: HYPOTONIA
     Route: 042
     Dates: start: 20061205, end: 20061205
  5. FENTANEST [Concomitant]
     Indication: ANALGESIC EFFECT
     Dates: start: 20061205, end: 20061205

REACTIONS (2)
  - ANAPHYLACTOID REACTION [None]
  - HAEMORRHAGIC DIATHESIS [None]
